FAERS Safety Report 18215203 (Version 6)
Quarter: 2023Q2

REPORT INFORMATION
  Report Type: Report from Study
  Country: US (occurrence: US)
  Receive Date: 20200831
  Receipt Date: 20230530
  Transmission Date: 20230722
  Serious: Yes (Hospitalization, Other)
  Sender: FDA-Public Use
  Company Number: US-BAUSCH-BL-2020-024541

PATIENT
  Age: 62 Year
  Sex: Male
  Weight: 68.03 kg

DRUGS (27)
  1. XIFAXAN [Suspect]
     Active Substance: RIFAXIMIN
     Indication: Hepatic encephalopathy
     Route: 048
     Dates: start: 2015, end: 2020
  2. XIFAXAN [Suspect]
     Active Substance: RIFAXIMIN
     Indication: Hepatic cirrhosis
     Dosage: SAMPLES
     Route: 048
     Dates: start: 2020, end: 20200823
  3. XIFAXAN [Suspect]
     Active Substance: RIFAXIMIN
     Route: 048
     Dates: start: 2020, end: 202112
  4. XIFAXAN [Suspect]
     Active Substance: RIFAXIMIN
     Route: 048
     Dates: end: 202303
  5. XIFAXAN [Suspect]
     Active Substance: RIFAXIMIN
     Route: 048
  6. METFORMIN [Concomitant]
     Active Substance: METFORMIN HYDROCHLORIDE
     Indication: Product used for unknown indication
     Dosage: 2 TABS DAILY (1000 MG), AS DIRECTED
     Route: 048
  7. CREON [Concomitant]
     Active Substance: PANCRELIPASE AMYLASE\PANCRELIPASE LIPASE\PANCRELIPASE PROTEASE
     Indication: Product used for unknown indication
     Dosage: AS DIRECTED
     Route: 048
  8. CARVEDILOL [Concomitant]
     Active Substance: CARVEDILOL
     Indication: Product used for unknown indication
     Route: 048
  9. ESOMEPRAZOLE [Concomitant]
     Active Substance: ESOMEPRAZOLE
     Indication: Product used for unknown indication
     Dosage: DELAYED RELEASE CAPSULE, DAILY
     Route: 048
  10. FINASTERIDE [Concomitant]
     Active Substance: FINASTERIDE
     Indication: Product used for unknown indication
     Dosage: EVERY BED TIME
     Route: 048
  11. FUROSEMIDE [Concomitant]
     Active Substance: FUROSEMIDE
     Indication: Product used for unknown indication
     Dosage: DAILY
     Route: 048
  12. GLIPIZIDE [Concomitant]
     Active Substance: GLIPIZIDE
     Indication: Product used for unknown indication
     Dosage: EVERY MORNING
     Route: 048
  13. PANCRELIPASE [Concomitant]
     Active Substance: PANCRELIPASE
     Indication: Product used for unknown indication
     Dosage: 6000 UNITS, 19000 UNITS AND 30000 UNITS, DELAYED RELEASE CAPSULE
     Route: 048
  14. PANTOPRAZOLE [Concomitant]
     Active Substance: PANTOPRAZOLE
     Indication: Product used for unknown indication
     Dosage: DAILY
     Route: 048
  15. PANTOPRAZOLE [Concomitant]
     Active Substance: PANTOPRAZOLE
     Dosage: DAILY
     Route: 048
  16. SPIRONOLACTONE [Concomitant]
     Active Substance: SPIRONOLACTONE
     Indication: Product used for unknown indication
     Dosage: AS DIRECTED, DAILY
     Route: 048
  17. SPIRONOLACTONE [Concomitant]
     Active Substance: SPIRONOLACTONE
     Dosage: DAILY, 4 REFILLS
     Route: 048
  18. TAMSULOSIN [Concomitant]
     Active Substance: TAMSULOSIN
     Indication: Product used for unknown indication
     Dosage: EVERY BED TIME
     Route: 048
  19. FERROUS FUMARATE [Concomitant]
     Active Substance: FERROUS FUMARATE
     Indication: Product used for unknown indication
     Dosage: 324 MG (105 MG ELEMENTARY IRON) (1 TAB) ORAL, DAILY, 2 REFILLS
     Route: 048
  20. FOLIC ACID [Concomitant]
     Active Substance: FOLIC ACID
     Indication: Product used for unknown indication
     Dosage: 1 MG 1 TAB, ORAL, DAILY
     Route: 048
  21. LACTULOSE [Concomitant]
     Active Substance: LACTULOSE
     Indication: Hepatic encephalopathy
     Dosage: 10 G/15 ML ORAL SYRUP, 20 G (30 ML) ORAL, TID, 4 REFILLS
     Route: 048
  22. PROPRANOLOL [Concomitant]
     Active Substance: PROPRANOLOL HYDROCHLORIDE
     Indication: Product used for unknown indication
     Dosage: 10 MG 1 TAB. ORAL, BID
     Route: 048
  23. THIAMINE [Concomitant]
     Active Substance: THIAMINE
     Indication: Product used for unknown indication
     Dosage: 100 MG= 1 TAB. ORAL, DAILY
     Route: 048
  24. VITAMIN B12 [Concomitant]
     Active Substance: CYANOCOBALAMIN
     Indication: Product used for unknown indication
     Dosage: 100 MG= 1 TAB. ORAL, DAILY
     Route: 048
  25. SARS-COV-2 VACCINE [Concomitant]
     Indication: COVID-19 immunisation
     Dosage: SARS-COV-2 (COVID-19) MRNA BNT
     Dates: start: 20210408
  26. SARS-COV-2 VACCINE [Concomitant]
     Dosage: SARS-COV-2 (COVID-19) MRNA BNT
     Dates: start: 20210429
  27. PNEUMOCOCCAL VACCINE POLYVALENT [Concomitant]
     Active Substance: PNEUMOCOCCAL VACCINE POLYVALENT
     Indication: Pneumococcal immunisation
     Dosage: PNEUMOCOCCAL 23-POLYVALEANT VACCINE
     Dates: start: 20170110

REACTIONS (14)
  - Occult blood positive [Recovered/Resolved]
  - Ventilation perfusion mismatch [Unknown]
  - Gastrointestinal haemorrhage [Unknown]
  - Gastric varices [Unknown]
  - Portal hypertension [Unknown]
  - Portal hypertensive gastropathy [Unknown]
  - Anaemia [Recovered/Resolved]
  - Hepatic lesion [Unknown]
  - White blood cell count decreased [Unknown]
  - Faeces discoloured [Unknown]
  - Memory impairment [Not Recovered/Not Resolved]
  - Influenza [Unknown]
  - Platelet count decreased [Unknown]
  - Product use issue [Unknown]

NARRATIVE: CASE EVENT DATE: 20200101
